FAERS Safety Report 13900990 (Version 1)
Quarter: 2017Q3

REPORT INFORMATION
  Report Type: Spontaneous
  Country: GB (occurrence: GB)
  Receive Date: 20170824
  Receipt Date: 20170824
  Transmission Date: 20171127
  Serious: Yes (Hospitalization)
  Sender: FDA-Public Use
  Company Number: GB-DEXPHARM-20171167

PATIENT
  Sex: Male
  Weight: 95.3 kg

DRUGS (7)
  1. OMEPRAZOLE. [Suspect]
     Active Substance: OMEPRAZOLE
  2. FOLIC ACID. [Suspect]
     Active Substance: FOLIC ACID
  3. AMLODIPINE [Suspect]
     Active Substance: AMLODIPINE BESYLATE
  4. METHOTREXATE. [Suspect]
     Active Substance: METHOTREXATE
     Indication: PSORIATIC ARTHROPATHY
  5. NAPROXEN. [Suspect]
     Active Substance: NAPROXEN
     Indication: PSORIATIC ARTHROPATHY
  6. BISOPROLOL [Suspect]
     Active Substance: BISOPROLOL
     Route: 048
  7. LEFLUNOMIDE. [Suspect]
     Active Substance: LEFLUNOMIDE
     Indication: PSORIATIC ARTHROPATHY
     Route: 048

REACTIONS (4)
  - Weight decreased [Unknown]
  - Steatorrhoea [Not Recovered/Not Resolved]
  - Nausea [Not Recovered/Not Resolved]
  - Pancreatitis [Not Recovered/Not Resolved]
